FAERS Safety Report 12953260 (Version 1)
Quarter: 2016Q4

REPORT INFORMATION
  Report Type: Spontaneous
  Country: ES (occurrence: ES)
  Receive Date: 20161117
  Receipt Date: 20161117
  Transmission Date: 20170207
  Serious: Yes (Other)
  Sender: FDA-Public Use
  Company Number: ES-AMGEN-ESPSP2015124716

PATIENT
  Age: 40 Year
  Sex: Male
  Weight: 80 kg

DRUGS (6)
  1. INDONILO [Concomitant]
     Indication: ANTIINFLAMMATORY THERAPY
     Dosage: 50 MG, 3X/DAY (EVERY 8 HOURS)
  2. FLOGOTER [Concomitant]
     Indication: ANTIINFLAMMATORY THERAPY
     Dosage: UNK UNK, AS NEEDED (ONLYIF HE HAD PAIN)
  3. YURELAX [Concomitant]
     Active Substance: CYCLOBENZAPRINE HYDROCHLORIDE
     Indication: PAIN
     Dosage: 1 DF, AS NEEDED (IF HE HAD PAIN AT NIGHT)
  4. OMEPRAZOLE. [Concomitant]
     Active Substance: OMEPRAZOLE
     Indication: PROPHYLAXIS
     Dosage: 1 DF, 1X/DAY (EVERY 24 HOURS,ONLY IF HE WAS TAKING ANTIINFLAMMATORIES OR FEELING BAD FROM STOMACH)
  5. ENBREL [Suspect]
     Active Substance: ETANERCEPT
     Indication: ANKYLOSING SPONDYLITIS
     Dosage: 50 MG, WEEKLY (ON FRIDAYS)
     Route: 058
     Dates: start: 20151009
  6. ENBREL [Suspect]
     Active Substance: ETANERCEPT
     Dosage: 50 MG, WEEKLY (ON WEDNESDAYS)
     Route: 058

REACTIONS (5)
  - Penile erythema [Recovered/Resolved]
  - Enteritis infectious [Unknown]
  - Infection [Recovered/Resolved]
  - Injection site haematoma [Recovered/Resolved]
  - Penile pain [Recovered/Resolved]

NARRATIVE: CASE EVENT DATE: 201510
